FAERS Safety Report 20384857 (Version 1)
Quarter: 2022Q1

REPORT INFORMATION
  Report Type: Spontaneous
  Country: JP (occurrence: JP)
  Receive Date: 20220127
  Receipt Date: 20220127
  Transmission Date: 20220423
  Serious: Yes (Other)
  Sender: FDA-Public Use
  Company Number: JP-PFIZER INC-202200074011

PATIENT

DRUGS (1)
  1. HALCION [Suspect]
     Active Substance: TRIAZOLAM

REACTIONS (2)
  - Overdose [Unknown]
  - Poisoning [Unknown]
